FAERS Safety Report 20520702 (Version 2)
Quarter: 2022Q1

REPORT INFORMATION
  Report Type: Report from Study
  Country: CA (occurrence: CA)
  Receive Date: 20220225
  Receipt Date: 20220304
  Transmission Date: 20220423
  Serious: Yes (Hospitalization)
  Sender: FDA-Public Use
  Company Number: CA-PFIZER INC-202200305720

PATIENT
  Age: 58 Year
  Sex: Male
  Weight: 81.25 kg

DRUGS (2)
  1. ENCORAFENIB [Suspect]
     Active Substance: ENCORAFENIB
     Indication: Adenocarcinoma of colon
     Dosage: 450 MG, DAILY
     Route: 048
     Dates: start: 20211206, end: 20220217
  2. BINIMETINIB [Suspect]
     Active Substance: BINIMETINIB
     Indication: Adenocarcinoma of colon
     Dosage: 45 MG, 2X/DAY
     Route: 048
     Dates: start: 20211206, end: 20220217

REACTIONS (3)
  - Acute kidney injury [Recovered/Resolved]
  - Anaemia [Recovered/Resolved]
  - Hypotension [Recovered/Resolved]

NARRATIVE: CASE EVENT DATE: 20220217
